FAERS Safety Report 18570075 (Version 4)
Quarter: 2020Q4

REPORT INFORMATION
  Report Type: Report from Study
  Country: FR (occurrence: FR)
  Receive Date: 20201202
  Receipt Date: 20201221
  Transmission Date: 20210114
  Serious: Yes (Hospitalization, Other)
  Sender: FDA-Public Use
  Company Number: FR-PFIZER INC-2020475091

PATIENT
  Age: 60 Year
  Sex: Male
  Weight: 60 kg

DRUGS (17)
  1. INNOHEP [Concomitant]
     Active Substance: TINZAPARIN SODIUM
     Indication: EMBOLISM VENOUS
     Dosage: 1000 INTERNATIONAL UNIT, DAILY
     Route: 058
     Dates: start: 20190829
  2. APIXABAN [Suspect]
     Active Substance: APIXABAN
     Dosage: 5 MG TWICE A DAY OR 2.5 MG TWICE A DAY ACCORDING TO THE RANDOMIZATION GROUP
     Route: 048
     Dates: start: 20190722
  3. METOCLOPRAMIDE. [Concomitant]
     Active Substance: METOCLOPRAMIDE
     Indication: NAUSEA
     Dosage: 30 MILLIGRAM, DAILY
     Route: 048
     Dates: start: 20190827, end: 20190829
  4. NEFOPAM [Concomitant]
     Active Substance: NEFOPAM
     Indication: PAIN
     Dosage: 120 MILLIGRAM, DAILY
     Route: 042
     Dates: start: 20190827
  5. PARACETAMOL [Concomitant]
     Active Substance: ACETAMINOPHEN
     Indication: PAIN
     Dosage: 4 GRAM, DAILY
     Route: 048
     Dates: start: 20190827, end: 20190829
  6. BUDESONIDE. [Concomitant]
     Active Substance: BUDESONIDE
     Indication: OEDEMA
     Dosage: 2 MILLIGRAM, DAILY
     Dates: start: 20190827
  7. METRONIDAZOLE. [Concomitant]
     Active Substance: METRONIDAZOLE
     Indication: ANTIBIOTIC THERAPY
     Dosage: 1 GRAM, DAILY
     Route: 042
     Dates: start: 20190827
  8. APIXABAN [Suspect]
     Active Substance: APIXABAN
     Dosage: 5 MG TWICE A DAY OR 2.5 MG TWICE A DAY ACCORDING TO THE RANDOMIZATION GROUP
     Route: 048
     Dates: start: 20190529, end: 20190715
  9. METHOTREXATE SODIUM. [Suspect]
     Active Substance: METHOTREXATE SODIUM
     Indication: NEOPLASM MALIGNANT
     Dosage: UNK
     Route: 042
     Dates: start: 20190515, end: 20190715
  10. MIDAZOLAM. [Concomitant]
     Active Substance: MIDAZOLAM
     Indication: PAIN
     Dosage: 5 MILLIGRAM, DAILY
     Route: 042
     Dates: start: 20190827
  11. MORPHINE [Concomitant]
     Active Substance: MORPHINE
     Indication: PAIN
     Dosage: 10 MILLIGRAM, DAILY
     Route: 042
     Dates: start: 20190827
  12. FENTANYL. [Concomitant]
     Active Substance: FENTANYL
     Indication: PAIN
     Dosage: 100 MICROGRAM, DAILY
     Route: 062
     Dates: start: 20190830
  13. LANSOPRAZOLE. [Concomitant]
     Active Substance: LANSOPRAZOLE
     Indication: ULCER
     Dosage: 30 MILLIGRAM, DAILY
     Route: 048
     Dates: start: 20190827
  14. SULFAMETHOXAZOLE+TRIMETHOPRIM [Concomitant]
     Active Substance: SULFAMETHOXAZOLE\TRIMETHOPRIM
     Indication: ANTIBIOTIC THERAPY
     Dosage: 800 MILLIGRAM, DAILY
     Route: 048
     Dates: start: 20190827
  15. METOCLOPRAMIDE. [Concomitant]
     Active Substance: METOCLOPRAMIDE
     Dosage: 24 MILLIGRAM, DAILY
     Route: 042
     Dates: start: 20190829
  16. PARACETAMOL [Concomitant]
     Active Substance: ACETAMINOPHEN
     Dosage: 4 GRAM, DAILLY
     Route: 042
     Dates: start: 20190829
  17. SODIUM BICARBONATE. [Concomitant]
     Active Substance: SODIUM BICARBONATE
     Indication: FUNGAL INFECTION
     Dosage: UNK
     Route: 049
     Dates: start: 20181010

REACTIONS (3)
  - Pneumocystis jirovecii pneumonia [Recovered/Resolved]
  - Device related infection [Recovered/Resolved]
  - Tracheostomy infection [Recovered/Resolved]

NARRATIVE: CASE EVENT DATE: 20190715
